FAERS Safety Report 5708654-4 (Version None)
Quarter: 2008Q2

REPORT INFORMATION
  Report Type: 
  Country: None (occurrence: None)
  Receive Date: 20080414
  Receipt Date: 20080414
  Transmission Date: 20081010
  Serious: Yes (Other)
  Sender: FDA-Public Use
  Company Number: None

PATIENT
  Age: 40 Year
  Sex: Female
  Weight: 56.246 kg

DRUGS (1)
  1. METHYLPREDNISOLONE [Suspect]
     Indication: MIDDLE EAR EFFUSION
     Dosage: 6-DAY DOSEPAK  3 TIMES A DAY  PO
     Route: 048

REACTIONS (9)
  - BALANCE DISORDER [None]
  - BURNING SENSATION [None]
  - DIZZINESS [None]
  - DYSPNOEA [None]
  - HYPOAESTHESIA [None]
  - ISCHAEMIA [None]
  - MIDDLE EAR EFFUSION [None]
  - PALPITATIONS [None]
  - PARAESTHESIA [None]
